FAERS Safety Report 5065641-X (Version None)
Quarter: 2006Q3

REPORT INFORMATION
  Report Type: 
  Country: None (occurrence: None)
  Receive Date: 20060724
  Receipt Date: 20060313
  Transmission Date: 20061208
  Serious: Yes (Hospitalization)
  Sender: FDA-Public Use
  Company Number: 6021192

PATIENT
  Age: 31 Year
  Sex: Female

DRUGS (5)
  1. LEVOTHYROXINE SODIUM [Suspect]
     Indication: DRUG USE FOR UNKNOWN INDICATION
     Dosage: 137 MCG (137 MCG, 1 D); ORAL
     Route: 048
  2. TONILAX (TABLET) (ALOE VERA GUM, ALOE FEROX GUM) [Suspect]
     Indication: DRUG USE FOR UNKNOWN INDICATION
     Dosage: ORAL
     Route: 048
  3. HUMEX (TABLET) (PARACETAMOL, CARBINOXAMINE, PHENYLPROPANOLAMINE) [Suspect]
     Indication: INFLUENZA
     Dosage: ORAL
     Route: 048
     Dates: start: 20051231
  4. PYRALVEX (SALICYLIC ACID), RHEUM PALMATUM) [Suspect]
     Indication: DRUG USE FOR UNKNOWN INDICATION
     Dosage: ORAL
     Route: 048
  5. DAFALGAN (500 MG, CAPSULE) (PARACETAMOL) [Suspect]
     Indication: DRUG USE FOR UNKNOWN INDICATION
     Dosage: ORAL
     Route: 048
     Dates: start: 20051231

REACTIONS (13)
  - ANTINUCLEAR ANTIBODY POSITIVE [None]
  - ASTHENIA [None]
  - CARDIAC DISORDER [None]
  - EPISTAXIS [None]
  - EPSTEIN-BARR VIRUS ANTIBODY POSITIVE [None]
  - ILL-DEFINED DISORDER [None]
  - INFLUENZA [None]
  - METRORRHAGIA [None]
  - PETECHIAE [None]
  - THROMBOCYTOPENIA [None]
  - THROMBOCYTOPENIC PURPURA [None]
  - VIRAL INFECTION [None]
  - WEIGHT DECREASED [None]
